FAERS Safety Report 9960113 (Version 1)
Quarter: 2014Q1

REPORT INFORMATION
  Report Type: Report from Study
  Country: US (occurrence: US)
  Receive Date: 20140305
  Receipt Date: 20140305
  Transmission Date: 20141002
  Serious: No
  Sender: FDA-Public Use
  Company Number: US-ABBVIE-13P-163-1103701-00

PATIENT
  Age: 41 Year
  Sex: Male

DRUGS (12)
  1. HUMIRA [Suspect]
     Indication: PSORIASIS
     Dosage: LOADING DOSE
     Dates: start: 20130606, end: 20130606
  2. HUMIRA [Suspect]
  3. ZOLOFT [Concomitant]
     Indication: BIPOLAR DISORDER
  4. ZOLOFT [Concomitant]
     Indication: SCHIZOPHRENIA
  5. LAMICTAL [Concomitant]
     Indication: BIPOLAR DISORDER
  6. LITHIUM [Concomitant]
     Indication: BIPOLAR DISORDER
  7. GEODON [Concomitant]
     Indication: SCHIZOPHRENIA
  8. WELLBUTRIN [Concomitant]
     Indication: DEPRESSION
  9. TRAZODONE [Concomitant]
     Indication: DEPRESSION
  10. FLOMAX [Concomitant]
     Indication: URINARY INCONTINENCE
  11. EXCEDRIN [Concomitant]
     Indication: HEADACHE
  12. NAPROSYN [Concomitant]
     Indication: PAIN

REACTIONS (5)
  - Dizziness [Recovered/Resolved]
  - Injection site bruising [Recovering/Resolving]
  - Nausea [Recovered/Resolved]
  - Injection site pain [Recovering/Resolving]
  - Psoriasis [Not Recovered/Not Resolved]
